FAERS Safety Report 15432355 (Version 1)
Quarter: 2018Q3

REPORT INFORMATION
  Report Type: Spontaneous
  Country: BR (occurrence: BR)
  Receive Date: 20180926
  Receipt Date: 20180926
  Transmission Date: 20181010
  Serious: Yes (Other)
  Sender: FDA-Public Use
  Company Number: BR-UCBSA-2018043332

PATIENT
  Sex: Male
  Weight: 35 kg

DRUGS (3)
  1. KEPPRA [Suspect]
     Active Substance: LEVETIRACETAM
     Indication: EPILEPSY
     Dosage: 250 MG, 2X/DAY (BID)
     Route: 048
     Dates: start: 201702, end: 201803
  2. KEPPRA [Suspect]
     Active Substance: LEVETIRACETAM
     Dosage: (750 MG CUT THE MEDICATION IN HALF), 2X/DAY (BID)
     Route: 048
     Dates: start: 201803, end: 20180914
  3. DEPAKENE [Suspect]
     Active Substance: VALPROIC ACID
     Indication: FOCAL DYSCOGNITIVE SEIZURES
     Dosage: 10 ML, 2X/DAY (BID)
     Route: 048
     Dates: start: 2013

REACTIONS (2)
  - Off label use [Unknown]
  - Seizure [Unknown]

NARRATIVE: CASE EVENT DATE: 2018
